FAERS Safety Report 5173300-8 (Version None)
Quarter: 2006Q4

REPORT INFORMATION
  Report Type: 
  Country: None (occurrence: None)
  Receive Date: 20061214
  Receipt Date: 20061208
  Transmission Date: 20070319
  Serious: Yes (Other)
  Sender: FDA-Public Use
  Company Number: US-PURDUE-USA_2006_0025905

PATIENT
  Age: 32 Year
  Sex: Male

DRUGS (3)
  1. OXYCONTIN [Suspect]
     Indication: PAIN
     Dosage: UNK UNK, UNK
     Route: 065
  2. MORPHINE SULFATE [Suspect]
     Indication: PAIN
     Dosage: UNK UNK, UNK
     Route: 065
  3. MARIJUANA [Concomitant]
     Indication: PROPHYLAXIS OF NAUSEA AND VOMITING

REACTIONS (5)
  - CONVULSION [None]
  - DECREASED APPETITE [None]
  - LEGAL PROBLEM [None]
  - PAIN IN EXTREMITY [None]
  - PROPHYLAXIS OF NAUSEA AND VOMITING [None]
